FAERS Safety Report 13176262 (Version 2)
Quarter: 2017Q1

REPORT INFORMATION
  Report Type: Spontaneous
  Country: CN (occurrence: CN)
  Receive Date: 20170201
  Receipt Date: 20170223
  Transmission Date: 20170428
  Serious: Yes (Hospitalization, Other)
  Sender: FDA-Public Use
  Company Number: CN-BRISTOL-MYERS SQUIBB COMPANY-BMS-2016-104303

PATIENT
  Sex: Female

DRUGS (1)
  1. SPRYCEL [Suspect]
     Active Substance: DASATINIB
     Indication: CHRONIC MYELOID LEUKAEMIA
     Dosage: 100 MG, QD
     Route: 048
     Dates: start: 20160701

REACTIONS (6)
  - Lung infection [Unknown]
  - Malignant neoplasm progression [Unknown]
  - Hyponatraemia [Unknown]
  - Cholangiocarcinoma [Unknown]
  - Infection [Unknown]
  - Anaemia [Unknown]
